FAERS Safety Report 15903303 (Version 1)
Quarter: 2019Q1

REPORT INFORMATION
  Report Type: Spontaneous
  Country: FR (occurrence: FR)
  Receive Date: 20190202
  Receipt Date: 20190202
  Transmission Date: 20190417
  Serious: Yes (Hospitalization)
  Sender: FDA-Public Use
  Company Number: FR-ACCORD-104776

PATIENT
  Age: 42 Year
  Sex: Male
  Weight: 67 kg

DRUGS (11)
  1. ETOPOSIDE TEVA [Suspect]
     Active Substance: ETOPOSIDE
     Indication: ADRENAL GLAND CANCER METASTATIC
     Route: 042
     Dates: start: 20170627
  2. LANSOPRAZOLE. [Concomitant]
     Active Substance: LANSOPRAZOLE
     Route: 048
  3. CARBOPLATIN. [Suspect]
     Active Substance: CARBOPLATIN
     Indication: ADRENAL GLAND CANCER METASTATIC
     Route: 042
     Dates: start: 20170627
  4. NEULASTA [Suspect]
     Active Substance: PEGFILGRASTIM
     Indication: COLONY STIMULATING FACTOR THERAPY
     Dosage: 6 MG,
     Route: 058
     Dates: start: 20171231, end: 20171231
  5. LOVENOX [Concomitant]
     Active Substance: ENOXAPARIN SODIUM
     Route: 058
  6. METHYLPREDNISOLONE MYLAN [Suspect]
     Active Substance: METHYLPREDNISOLONE
     Indication: ADRENAL GLAND CANCER METASTATIC
     Route: 042
     Dates: start: 20170627
  7. EMEND [Concomitant]
     Active Substance: APREPITANT
     Dosage: 125 PUIS 80 MG
     Route: 048
  8. LYSODREN [Concomitant]
     Active Substance: MITOTANE
     Route: 048
  9. LEVOTHYROX [Concomitant]
     Active Substance: LEVOTHYROXINE
     Dosage: 75 MICROGRAMS
     Route: 048
  10. ONDANSETRON ACCORD [Concomitant]
     Active Substance: ONDANSETRON
     Route: 042
  11. HYDROCORTISONE. [Concomitant]
     Active Substance: HYDROCORTISONE
     Route: 048

REACTIONS (4)
  - Hyperthermia [Recovered/Resolved]
  - Off label use [Unknown]
  - Hyperleukocytosis [Recovered/Resolved]
  - Hot flush [Recovered/Resolved]

NARRATIVE: CASE EVENT DATE: 20180101
